FAERS Safety Report 9567950 (Version 2)
Quarter: 2013Q3

REPORT INFORMATION
  Report Type: Spontaneous
  Country: US (occurrence: US)
  Receive Date: 20130930
  Receipt Date: 20130930
  Transmission Date: 20140515
  Serious: No
  Sender: FDA-Public Use
  Company Number: US-AMGEN-USASP2013020374

PATIENT
  Age: 39 Year
  Sex: Male
  Weight: 79.37 kg

DRUGS (1)
  1. ENBREL [Suspect]
     Indication: PSORIASIS
     Dosage: 50 MG, 2 TIMES/WK
     Dates: start: 20130318

REACTIONS (4)
  - Arthralgia [Recovered/Resolved]
  - Throat irritation [Recovered/Resolved]
  - Hypersensitivity [Unknown]
  - Psoriatic arthropathy [Recovering/Resolving]
